FAERS Safety Report 8313763-X (Version None)
Quarter: 2012Q2

REPORT INFORMATION
  Report Type: 
  Country: None (occurrence: None)
  Receive Date: 20120426
  Receipt Date: 20120423
  Transmission Date: 20120825
  Serious: Yes (Death)
  Sender: FDA-Public Use
  Company Number: DE-JNJFOC-20120213439

PATIENT
  Sex: Female

DRUGS (21)
  1. CORTICOSTEROIDS [Concomitant]
     Route: 065
  2. DOCETAXEL [Suspect]
     Route: 042
  3. CORTICOSTEROIDS [Concomitant]
     Indication: PREMEDICATION
     Route: 065
  4. ANTIEMETIC [Concomitant]
     Indication: PROPHYLAXIS
     Route: 065
  5. CYCLOPHOSPHAMIDE [Suspect]
     Route: 042
  6. CORTICOSTEROIDS [Concomitant]
     Route: 065
  7. DOXORUBICIN HCL [Suspect]
     Indication: BREAST CANCER
     Route: 040
  8. DOXORUBICIN HCL [Suspect]
     Route: 040
  9. DOXORUBICIN HCL [Suspect]
     Route: 040
  10. DOCETAXEL [Suspect]
     Route: 042
  11. CORTICOSTEROIDS [Concomitant]
     Route: 065
  12. CYCLOPHOSPHAMIDE [Suspect]
     Route: 042
  13. DOXORUBICIN HCL [Suspect]
     Route: 040
  14. CYCLOPHOSPHAMIDE [Suspect]
     Indication: BREAST CANCER
     Route: 042
  15. DOCETAXEL [Suspect]
     Route: 042
  16. CYCLOPHOSPHAMIDE [Suspect]
     Route: 042
  17. DOXORUBICIN HCL [Suspect]
     Route: 040
  18. DOXORUBICIN HCL [Suspect]
     Route: 040
  19. DOXORUBICIN HCL [Suspect]
     Route: 040
  20. DOXORUBICIN HCL [Suspect]
     Route: 040
  21. DOCETAXEL [Suspect]
     Indication: BREAST CANCER
     Route: 042

REACTIONS (1)
  - CARDIAC FAILURE CONGESTIVE [None]
